FAERS Safety Report 24658747 (Version 2)
Quarter: 2024Q4

REPORT INFORMATION
  Report Type: Spontaneous
  Country: AE (occurrence: AE)
  Receive Date: 20241125
  Receipt Date: 20241204
  Transmission Date: 20250114
  Serious: Yes (Hospitalization, Other)
  Sender: ACCORD
  Company Number: AE-Accord-456837

PATIENT
  Age: 44 Year
  Sex: Male

DRUGS (5)
  1. ARIPIPRAZOLE [Interacting]
     Active Substance: ARIPIPRAZOLE
     Indication: Schizophrenia
     Dosage: INCREASED TO 20 MG ONCE DAILY, THEN 30 MG OD
     Route: 048
  2. HALOPERIDOL [Interacting]
     Active Substance: HALOPERIDOL
     Indication: Schizophrenia
     Dosage: AT BEDTIME, INCREASED TO 15 MG BID
  3. ARIPIPRAZOLE [Interacting]
     Active Substance: ARIPIPRAZOLE
     Indication: Schizophrenia
     Dosage: LONG-ACTING INJECTABLE
     Route: 030
  4. ARIPIPRAZOLE [Interacting]
     Active Substance: ARIPIPRAZOLE
     Indication: Schizophrenia
     Dosage: INCREASED TO 20 MG ONCE DAILY, THEN 30 MG OD
     Route: 048
  5. ARIPIPRAZOLE [Interacting]
     Active Substance: ARIPIPRAZOLE
     Indication: Schizophrenia
     Dosage: INCREASED TO 20 MG ONCE DAILY, THEN 30 MG OD
     Route: 048

REACTIONS (8)
  - Drug interaction [Unknown]
  - Psychotic symptom [Recovering/Resolving]
  - Condition aggravated [Recovering/Resolving]
  - Aggression [Recovering/Resolving]
  - Schizophrenia [Recovered/Resolved]
  - Hand fracture [Unknown]
  - Suicidal ideation [Unknown]
  - Physical assault [Unknown]
